FAERS Safety Report 6635355-0 (Version None)
Quarter: 2010Q1

REPORT INFORMATION
  Report Type: 
  Country: None (occurrence: None)
  Receive Date: 20100311
  Receipt Date: 20100311
  Transmission Date: 20100710
  Serious: Yes (Hospitalization)
  Sender: FDA-Public Use
  Company Number: None

PATIENT
  Age: 85 Year
  Sex: Female
  Weight: 56.7 kg

DRUGS (2)
  1. AVASTIN [Suspect]
     Indication: BILE DUCT CANCER
     Dosage: 10 MG/KG EVERY OTHER WEEK IV DRIP
     Route: 041
     Dates: start: 20100126, end: 20100222
  2. OXALIPLATIN [Suspect]
     Indication: BILE DUCT CANCER
     Dosage: 65 MG/KG EVERY OTHER WEEK IV DRIP
     Route: 041
     Dates: start: 20100126, end: 20100222

REACTIONS (1)
  - LARGE INTESTINE PERFORATION [None]
